FAERS Safety Report 5212282-7 (Version None)
Quarter: 2006Q4

REPORT INFORMATION
  Report Type: 
  Country: None (occurrence: None)
  Receive Date: 20061130
  Receipt Date: 20060217
  Transmission Date: 20070319
  Serious: Yes (Other)
  Sender: FDA-Public Use
  Company Number: WAES 0602USA04765

PATIENT
  Age: 81 Year
  Sex: Female
  Weight: 63.9572 kg

DRUGS (5)
  1. FOSAMAX [Suspect]
     Indication: OSTEOPOROSIS
     Dosage: 70 MG/WKY/PO
     Route: 048
     Dates: start: 20030101, end: 20030101
  2. LIPITOR [Concomitant]
  3. NORVASC [Concomitant]
  4. ATENOLOL [Concomitant]
  5. RANITIDINE [Concomitant]

REACTIONS (2)
  - ORAL TORUS [None]
  - OSTEONECROSIS [None]
